FAERS Safety Report 7691819-2 (Version None)
Quarter: 2011Q3

REPORT INFORMATION
  Report Type: 
  Country: None (occurrence: None)
  Receive Date: 20110818
  Receipt Date: 20101217
  Transmission Date: 20111222
  Serious: Yes (Hospitalization)
  Sender: FDA-Public Use
  Company Number: ES-AMGEN-ESPNI2010004185

PATIENT

DRUGS (1)
  1. CINACALCET HYDROCHLORIDE [Suspect]
     Dosage: 15 MG, UNK
     Route: 048
     Dates: start: 20060425

REACTIONS (2)
  - HOSPITALISATION [None]
  - MEDICAL OBSERVATION [None]
